FAERS Safety Report 5816618-5 (Version None)
Quarter: 2008Q3

REPORT INFORMATION
  Report Type: 
  Country: None (occurrence: None)
  Receive Date: 20080721
  Receipt Date: 20080709
  Transmission Date: 20090109
  Serious: Yes (Other)
  Sender: FDA-Public Use
  Company Number: US-PFIZER INC-2008058048

PATIENT
  Sex: Male
  Weight: 86.2 kg

DRUGS (2)
  1. ZOLOFT [Suspect]
     Indication: OBSESSIVE-COMPULSIVE DISORDER
     Route: 048
  2. ATENOLOL [Concomitant]
     Indication: CARDIAC DISORDER

REACTIONS (1)
  - TIC [None]
